FAERS Safety Report 19412180 (Version 3)
Quarter: 2024Q1

REPORT INFORMATION
  Report Type: Report from Study
  Country: GB (occurrence: GB)
  Receive Date: 20210614
  Receipt Date: 20240229
  Transmission Date: 20240409
  Serious: Yes (Hospitalization, Other)
  Sender: FDA-Public Use
  Company Number: GB-LEO PHARMA-335518

PATIENT
  Age: 71 Year
  Sex: Female

DRUGS (89)
  1. BRODALUMAB [Suspect]
     Active Substance: BRODALUMAB
     Indication: Psoriasis
     Dosage: DOSAGE : 210MG WEEK 0, 1, 2 THEN EVERY TWO WEEKS ADMINISTERED VIA SUBCUTANEOUS INJECTION
     Route: 058
     Dates: start: 20200922
  2. BRODALUMAB [Suspect]
     Active Substance: BRODALUMAB
     Indication: Psoriasis
     Dosage: DOSAGE : 210MG WEEK 0, 1, 2 THEN EVERY TWO WEEKS ADMINISTERED VIA SUBCUTANEOUS INJECTION
     Route: 058
     Dates: start: 20200922
  3. BRODALUMAB [Suspect]
     Active Substance: BRODALUMAB
     Indication: Psoriasis
     Dosage: DOSAGE : 210MG WEEK 0, 1, 2 THEN EVERY TWO WEEKS ADMINISTERED VIA SUBCUTANEOUS INJECTION
     Route: 058
     Dates: start: 20200922
  4. BRODALUMAB [Suspect]
     Active Substance: BRODALUMAB
     Indication: Psoriasis
     Dosage: DOSAGE : 210MG WEEK 0, 1, 2 THEN EVERY TWO WEEKS ADMINISTERED VIA SUBCUTANEOUS INJECTION
     Route: 058
     Dates: start: 20200922
  5. BRODALUMAB [Suspect]
     Active Substance: BRODALUMAB
     Indication: Psoriasis
     Dosage: DOSAGE : 210MG WEEK 0, 1, 2 THEN EVERY TWO WEEKS ADMINISTERED VIA SUBCUTANEOUS INJECTION
     Route: 058
     Dates: start: 20200922
  6. BRODALUMAB [Suspect]
     Active Substance: BRODALUMAB
     Indication: Psoriasis
     Dosage: DOSAGE : 210MG WEEK 0, 1, 2 THEN EVERY TWO WEEKS ADMINISTERED VIA SUBCUTANEOUS INJECTION
     Route: 058
     Dates: start: 20200922
  7. BRODALUMAB [Suspect]
     Active Substance: BRODALUMAB
     Indication: Psoriasis
     Dosage: DOSAGE : 210MG WEEK 0, 1, 2 THEN EVERY TWO WEEKS ADMINISTERED VIA SUBCUTANEOUS INJECTION
     Route: 058
     Dates: start: 20200922
  8. BRODALUMAB [Suspect]
     Active Substance: BRODALUMAB
     Indication: Psoriasis
     Dosage: DOSAGE : 210MG WEEK 0, 1, 2 THEN EVERY TWO WEEKS ADMINISTERED VIA SUBCUTANEOUS INJECTION
     Route: 058
     Dates: start: 20200922
  9. BRODALUMAB [Suspect]
     Active Substance: BRODALUMAB
     Indication: Psoriasis
  10. BRODALUMAB [Suspect]
     Active Substance: BRODALUMAB
     Indication: Psoriasis
  11. BRODALUMAB [Suspect]
     Active Substance: BRODALUMAB
     Indication: Psoriasis
  12. BRODALUMAB [Suspect]
     Active Substance: BRODALUMAB
     Indication: Psoriasis
  13. BRODALUMAB [Suspect]
     Active Substance: BRODALUMAB
     Indication: Psoriasis
  14. BRODALUMAB [Suspect]
     Active Substance: BRODALUMAB
     Indication: Psoriasis
  15. BRODALUMAB [Suspect]
     Active Substance: BRODALUMAB
     Indication: Psoriasis
  16. BRODALUMAB [Suspect]
     Active Substance: BRODALUMAB
     Indication: Psoriasis
  17. BRODALUMAB [Suspect]
     Active Substance: BRODALUMAB
     Indication: Psoriasis
     Dates: start: 20201001
  18. BRODALUMAB [Suspect]
     Active Substance: BRODALUMAB
     Indication: Psoriasis
     Dates: start: 20201001
  19. BRODALUMAB [Suspect]
     Active Substance: BRODALUMAB
     Indication: Psoriasis
     Dates: start: 20201001
  20. BRODALUMAB [Suspect]
     Active Substance: BRODALUMAB
     Indication: Psoriasis
     Dates: start: 20201001
  21. BRODALUMAB [Suspect]
     Active Substance: BRODALUMAB
     Indication: Psoriasis
     Dates: start: 20201001
  22. BRODALUMAB [Suspect]
     Active Substance: BRODALUMAB
     Indication: Psoriasis
     Dates: start: 20201001
  23. BRODALUMAB [Suspect]
     Active Substance: BRODALUMAB
     Indication: Psoriasis
     Dates: start: 20201001
  24. BRODALUMAB [Suspect]
     Active Substance: BRODALUMAB
     Indication: Psoriasis
     Dates: start: 20201001
  25. QV [Concomitant]
     Indication: Product used for unknown indication
     Dosage: CREAM
     Dates: start: 20230614, end: 20230619
  26. QV [Concomitant]
     Indication: Product used for unknown indication
     Dosage: WASH
     Dates: start: 20230627
  27. FOLIC ACID [Concomitant]
     Active Substance: FOLIC ACID
     Indication: Product used for unknown indication
     Dates: start: 20180509
  28. FLUCLOXACILLIN [Concomitant]
     Active Substance: FLUCLOXACILLIN
     Indication: Product used for unknown indication
     Dates: start: 20230307, end: 20230313
  29. FLUCLOXACILLIN [Concomitant]
     Active Substance: FLUCLOXACILLIN
     Indication: Product used for unknown indication
     Dates: start: 20230512, end: 20230518
  30. FLUCLOXACILLIN [Concomitant]
     Active Substance: FLUCLOXACILLIN
     Indication: Product used for unknown indication
     Dates: start: 20210423
  31. FLUCLOXACILLIN [Concomitant]
     Active Substance: FLUCLOXACILLIN
     Indication: Product used for unknown indication
     Dates: start: 20221228, end: 20230103
  32. FLUCLOXACILLIN [Concomitant]
     Active Substance: FLUCLOXACILLIN
     Indication: Product used for unknown indication
     Dates: start: 20230130, end: 20230205
  33. FELODIPINE [Concomitant]
     Active Substance: FELODIPINE
     Indication: Product used for unknown indication
     Dates: start: 20181206
  34. ALBUTEROL [Concomitant]
     Active Substance: ALBUTEROL
     Indication: Product used for unknown indication
     Dates: start: 20181206
  35. OMEPRAZOLE [Concomitant]
     Active Substance: OMEPRAZOLE
     Indication: Product used for unknown indication
     Dates: start: 20170102
  36. SERTRALINE [Concomitant]
     Active Substance: SERTRALINE HYDROCHLORIDE
     Indication: Product used for unknown indication
     Dates: start: 20160104, end: 20191130
  37. METHOTREXATE [Concomitant]
     Active Substance: METHOTREXATE
     Indication: Product used for unknown indication
     Dates: start: 20200701
  38. MONTELUKAST [Concomitant]
     Active Substance: MONTELUKAST SODIUM
     Indication: Product used for unknown indication
     Dates: start: 20181206
  39. HYDROXYZINE [Concomitant]
     Active Substance: HYDROXYZINE HYDROCHLORIDE
     Indication: Product used for unknown indication
     Dates: start: 20180206
  40. HYDRALAZINE [Concomitant]
     Active Substance: HYDRALAZINE HYDROCHLORIDE
     Indication: Product used for unknown indication
     Dates: start: 20160104, end: 20160204
  41. BECLOMETHASONE DIPROPIONATE [Concomitant]
     Active Substance: BECLOMETHASONE DIPROPIONATE
     Indication: Product used for unknown indication
     Dates: start: 20080201, end: 20190108
  42. IBUPROFEN [Concomitant]
     Active Substance: IBUPROFEN
     Indication: Product used for unknown indication
     Dates: start: 20080117, end: 20200324
  43. IBUPROFEN [Concomitant]
     Active Substance: IBUPROFEN
     Indication: Product used for unknown indication
     Dates: start: 20230605, end: 20230613
  44. BETAMETHASONE DIPROPIONATE\CALCIPOTRIENE MONOHYDRATE [Concomitant]
     Active Substance: BETAMETHASONE DIPROPIONATE\CALCIPOTRIENE MONOHYDRATE
     Indication: Product used for unknown indication
     Dates: start: 20210128
  45. LANSOPRAZOLE [Concomitant]
     Active Substance: LANSOPRAZOLE
     Indication: Product used for unknown indication
     Dates: start: 20210211, end: 20210718
  46. CHLOROCRESOL [Concomitant]
     Active Substance: CHLOROCRESOL
     Indication: Product used for unknown indication
     Dates: start: 20210323
  47. FEXOFENADINE [Concomitant]
     Active Substance: FEXOFENADINE HYDROCHLORIDE
     Indication: Product used for unknown indication
     Dates: start: 20210323, end: 20210523
  48. CLOBETASOL PROPIONATE [Concomitant]
     Active Substance: CLOBETASOL PROPIONATE
     Indication: Product used for unknown indication
     Dates: start: 20220520
  49. CLOBETASOL PROPIONATE [Concomitant]
     Active Substance: CLOBETASOL PROPIONATE
     Indication: Product used for unknown indication
     Dates: start: 20220617
  50. NYSTATIN [Concomitant]
     Active Substance: NYSTATIN
     Indication: Product used for unknown indication
     Dates: start: 20220617, end: 20220617
  51. BETAMETHASONE DIPROPIONATE\CLOTRIMAZOLE [Concomitant]
     Active Substance: BETAMETHASONE DIPROPIONATE\CLOTRIMAZOLE
     Indication: Product used for unknown indication
     Dates: start: 20220617
  52. CHLORAMPHENICOL [Concomitant]
     Active Substance: CHLORAMPHENICOL
     Indication: Product used for unknown indication
     Dates: start: 20221228, end: 20230128
  53. ERYTHROMYCIN [Concomitant]
     Active Substance: ERYTHROMYCIN
     Indication: Product used for unknown indication
     Dates: start: 20230329, end: 20230404
  54. AMOXICILLIN\CLAVULANATE POTASSIUM [Concomitant]
     Active Substance: AMOXICILLIN\CLAVULANATE POTASSIUM
     Indication: Product used for unknown indication
     Dates: start: 20230513, end: 20230517
  55. AMOXICILLIN\CLAVULANATE POTASSIUM [Concomitant]
     Active Substance: AMOXICILLIN\CLAVULANATE POTASSIUM
     Indication: Product used for unknown indication
     Dates: start: 20230604, end: 20230606
  56. TEICOPLANIN [Concomitant]
     Active Substance: TEICOPLANIN
     Indication: Product used for unknown indication
     Dates: start: 20230517, end: 20230521
  57. DALTEPARIN [Concomitant]
     Active Substance: DALTEPARIN
     Indication: Product used for unknown indication
     Dates: start: 20230604, end: 20230619
  58. ACETAMINOPHEN [Concomitant]
     Active Substance: ACETAMINOPHEN
     Indication: Product used for unknown indication
     Dates: start: 20230604, end: 20230619
  59. CODEINE [Concomitant]
     Active Substance: CODEINE
     Indication: Product used for unknown indication
     Dates: start: 20230605, end: 20230619
  60. ZOSYN [Concomitant]
     Active Substance: PIPERACILLIN SODIUM\TAZOBACTAM SODIUM
     Indication: Product used for unknown indication
     Dates: start: 20230606, end: 20230612
  61. Betamethasone/Neomycin [Concomitant]
     Indication: Product used for unknown indication
     Dates: start: 20230606, end: 20230619
  62. CLOTRIMAZOLE [Concomitant]
     Active Substance: CLOTRIMAZOLE
     Indication: Product used for unknown indication
     Dates: start: 20230608, end: 20230618
  63. METRONIDAZOLE [Concomitant]
     Active Substance: METRONIDAZOLE
     Indication: Product used for unknown indication
     Dates: start: 20230609, end: 20230612
  64. ONDANSETRON [Concomitant]
     Active Substance: ONDANSETRON
     Indication: Product used for unknown indication
     Dates: start: 20230611, end: 20230611
  65. FLUCONAZOLE [Concomitant]
     Active Substance: FLUCONAZOLE
     Indication: Product used for unknown indication
     Dates: start: 20230612, end: 20230619
  66. SPIRONOLACTONE [Concomitant]
     Active Substance: SPIRONOLACTONE
     Indication: Product used for unknown indication
     Dates: start: 20230613, end: 20230619
  67. DILTIAZEM [Concomitant]
     Active Substance: DILTIAZEM
     Indication: Product used for unknown indication
     Dates: start: 20230613, end: 20230619
  68. DOXYCYCLINE [Concomitant]
     Active Substance: DOXYCYCLINE
     Indication: Product used for unknown indication
     Dates: start: 20230613, end: 20230629
  69. DOXYCYCLINE [Concomitant]
     Active Substance: DOXYCYCLINE
     Indication: Product used for unknown indication
     Dates: start: 20231103, end: 20231203
  70. CHLORPHENIRAMINE MALEATE [Concomitant]
     Active Substance: CHLORPHENIRAMINE MALEATE
     Indication: Product used for unknown indication
     Dates: start: 20230613, end: 20230619
  71. CIPROFLOXACIN [Concomitant]
     Active Substance: CIPROFLOXACIN
     Indication: Product used for unknown indication
     Dates: start: 20230613, end: 20230629
  72. CLOTRIMAZOLE\HYDROCORTISONE [Concomitant]
     Active Substance: CLOTRIMAZOLE\HYDROCORTISONE
     Indication: Product used for unknown indication
     Dates: start: 20230613, end: 20230619
  73. DERMOL [Concomitant]
     Active Substance: BENZALKONIUM CHLORIDE\CHLORHEXIDINE HYDROCHLORIDE\ISOPROPYL MYRISTATE\PARAFFIN
     Indication: Product used for unknown indication
     Dates: start: 20230614, end: 20230619
  74. Oilatum [Concomitant]
     Indication: Product used for unknown indication
     Dates: start: 20230627
  75. PARAFFIN [Concomitant]
     Active Substance: PARAFFIN
     Indication: Product used for unknown indication
     Dates: start: 20230627
  76. Medi Derma-S barrier cream [Concomitant]
     Indication: Product used for unknown indication
     Dates: start: 20230705, end: 20230830
  77. TERBINAFINE HYDROCHLORIDE [Concomitant]
     Active Substance: TERBINAFINE HYDROCHLORIDE
     Indication: Product used for unknown indication
     Dates: start: 20230705, end: 20230830
  78. CLARITHROMYCIN [Concomitant]
     Active Substance: CLARITHROMYCIN
     Indication: Product used for unknown indication
     Dates: start: 20230731, end: 20230806
  79. CLARITHROMYCIN [Concomitant]
     Active Substance: CLARITHROMYCIN
     Indication: Product used for unknown indication
     Dates: start: 20230104, end: 20230110
  80. CLARITHROMYCIN [Concomitant]
     Active Substance: CLARITHROMYCIN
     Indication: Product used for unknown indication
     Dates: start: 20231013, end: 20231019
  81. TRIMOVATE [Concomitant]
     Active Substance: CLOBETASONE BUTYRATE\NYSTATIN\OXYTETRACYCLINE CALCIUM
     Indication: Product used for unknown indication
     Dates: start: 20230915, end: 20231015
  82. PREDNISOLONE [Concomitant]
     Active Substance: PREDNISOLONE
     Indication: Product used for unknown indication
     Dates: start: 20231103, end: 20231108
  83. ENSTILAR [Suspect]
     Active Substance: BETAMETHASONE DIPROPIONATE\CALCIPOTRIENE HYDRATE
     Indication: Product used for unknown indication
     Dates: start: 20200630
  84. ENSTILAR [Suspect]
     Active Substance: BETAMETHASONE DIPROPIONATE\CALCIPOTRIENE HYDRATE
     Indication: Product used for unknown indication
     Dates: start: 20200630
  85. ENSTILAR [Suspect]
     Active Substance: BETAMETHASONE DIPROPIONATE\CALCIPOTRIENE HYDRATE
     Indication: Product used for unknown indication
     Dates: start: 20200630
  86. ENSTILAR [Suspect]
     Active Substance: BETAMETHASONE DIPROPIONATE\CALCIPOTRIENE HYDRATE
     Indication: Product used for unknown indication
     Dates: start: 20200630
  87. ENSTILAR [Suspect]
     Active Substance: BETAMETHASONE DIPROPIONATE\CALCIPOTRIENE HYDRATE
     Indication: Product used for unknown indication
     Dates: start: 20200630
  88. ENSTILAR [Suspect]
     Active Substance: BETAMETHASONE DIPROPIONATE\CALCIPOTRIENE HYDRATE
     Indication: Product used for unknown indication
     Dates: start: 20200630
  89. ENSTILAR [Suspect]
     Active Substance: BETAMETHASONE DIPROPIONATE\CALCIPOTRIENE HYDRATE
     Indication: Product used for unknown indication
     Dates: start: 20200630

REACTIONS (30)
  - Peripheral swelling [Not Recovered/Not Resolved]
  - Cellulitis [Recovered/Resolved]
  - Dermatitis [Recovered/Resolved with Sequelae]
  - Panniculitis [Recovered/Resolved]
  - Peripheral swelling [Unknown]
  - Dyspnoea [Unknown]
  - Cough [Unknown]
  - Cough [Unknown]
  - Condition aggravated [Unknown]
  - Mobility decreased [Unknown]
  - Pruritus [Unknown]
  - Skin wound [Unknown]
  - Fungal infection [Unknown]
  - Pain in extremity [Unknown]
  - Erythema [Unknown]
  - Pruritus [Unknown]
  - Skin wound [Unknown]
  - Cellulitis [Recovered/Resolved]
  - Erythema [Unknown]
  - Peripheral swelling [Unknown]
  - Mobility decreased [Unknown]
  - Dyspnoea [Unknown]
  - Pain in extremity [Unknown]
  - Cellulitis [Recovered/Resolved with Sequelae]
  - Dermatitis [Recovered/Resolved with Sequelae]
  - Panniculitis [Recovered/Resolved]
  - Cellulitis [Recovered/Resolved with Sequelae]
  - Condition aggravated [Unknown]
  - Skin burning sensation [Unknown]
  - Skin burning sensation [Unknown]

NARRATIVE: CASE EVENT DATE: 20210201
